FAERS Safety Report 10698646 (Version 2)
Quarter: 2015Q1

REPORT INFORMATION
  Report Type: Report from Study
  Country: US (occurrence: US)
  Receive Date: 20150108
  Receipt Date: 20150122
  Transmission Date: 20150721
  Serious: Yes (Other)
  Sender: FDA-Public Use
  Company Number: US-TARO-2014TAR00665

PATIENT
  Age: 66 Year
  Sex: Male
  Weight: 94.8 kg

DRUGS (15)
  1. FUROSEMIDE. [Concomitant]
     Active Substance: FUROSEMIDE
     Dosage: 40 MG, 1X/DAY
     Route: 048
     Dates: start: 2006
  2. AMLODIPINE BESYLATE. [Concomitant]
     Active Substance: AMLODIPINE BESYLATE
     Dosage: 10 MG, 1X/DAY
     Route: 048
     Dates: start: 2006
  3. ATORVASTATIN [Concomitant]
     Active Substance: ATORVASTATIN
     Dosage: 80 MG, 1X/DAY
     Route: 048
     Dates: start: 2006
  4. OMEPRAZOLE. [Concomitant]
     Active Substance: OMEPRAZOLE
     Dosage: 20 MG, AS NEEDED
     Route: 048
     Dates: start: 2006
  5. SILDENAFIL CITRATE. [Concomitant]
     Active Substance: SILDENAFIL CITRATE
     Dosage: 100 MG, UNK
     Dates: start: 2011
  6. PLAVIX [Concomitant]
     Active Substance: CLOPIDOGREL BISULFATE
     Dosage: 75 MG, 1X/DAY
     Route: 048
     Dates: start: 2006
  7. UNKNOWN (BLINDED) STUDY DRUG [Suspect]
     Active Substance: INVESTIGATIONAL PRODUCT
     Indication: PSORIASIS
     Dosage: 1 DOSAGE UNITS, 1X/DAY
     Route: 061
     Dates: start: 20031203
  8. HYDRALAZINE HCL [Concomitant]
     Active Substance: HYDRALAZINE HYDROCHLORIDE
     Dosage: 50 MG, 3X/DAY
     Route: 048
     Dates: start: 2006
  9. ASPIRIN. [Concomitant]
     Active Substance: ASPIRIN
     Dosage: 81 MG, 1X/DAY
     Route: 048
     Dates: start: 2006
  10. GLIPIZIDE. [Concomitant]
     Active Substance: GLIPIZIDE
     Dosage: 10 MG, 1X/DAY
     Route: 048
     Dates: start: 2006
  11. CERAVE AM FACIAL MOISTURIZING [Concomitant]
     Active Substance: HOMOSALATE\OCTINOXATE\OCTOCRYLENE\ZINC OXIDE
     Dosage: 1 DOSAGE UNITS, AS NEEDED
     Route: 061
     Dates: start: 20141203
  12. POTASSIUM CITRATE. [Concomitant]
     Active Substance: POTASSIUM CITRATE
     Dosage: 540 MG, 1X/DAY
     Route: 048
     Dates: start: 2004
  13. METFORMIN HCL [Concomitant]
     Active Substance: METFORMIN HYDROCHLORIDE
     Dosage: 500 MG, 2X/DAY
     Route: 048
     Dates: start: 2006
  14. METOPROLOL TARTRATE. [Concomitant]
     Active Substance: METOPROLOL TARTRATE
     Dosage: 100 MG, 2X/DAY
     Route: 048
     Dates: start: 2006
  15. LANTUS [Concomitant]
     Active Substance: INSULIN GLARGINE
     Dosage: 60 UNK, 1X/DAY
     Route: 058
     Dates: start: 2010

REACTIONS (3)
  - Ligament sprain [Recovering/Resolving]
  - Skeletal injury [None]
  - Fall [None]

NARRATIVE: CASE EVENT DATE: 20141222
